FAERS Safety Report 4788350-0 (Version None)
Quarter: 2005Q4

REPORT INFORMATION
  Report Type: 
  Country: None (occurrence: None)
  Receive Date: 20051005
  Receipt Date: 20050927
  Transmission Date: 20060501
  Serious: Yes (Disabling, Other)
  Sender: FDA-Public Use
  Company Number: PHNU2005DE03288

PATIENT
  Age: 55 Year
  Sex: Female

DRUGS (2)
  1. PROVAS COMP [Suspect]
     Indication: HYPERTENSION
     Route: 048
     Dates: start: 20030101
  2. METOPROLOL [Concomitant]
     Indication: HYPERTENSION
     Route: 048
     Dates: start: 20030101

REACTIONS (7)
  - CEREBRAL CIRCULATORY FAILURE [None]
  - CEREBROVASCULAR ACCIDENT [None]
  - DIZZINESS [None]
  - GOUT [None]
  - HYPERTHYROIDISM [None]
  - HYPOAESTHESIA [None]
  - URINE URIC ACID INCREASED [None]
